FAERS Safety Report 6337459-9 (Version None)
Quarter: 2009Q3

REPORT INFORMATION
  Report Type: 
  Country: None (occurrence: None)
  Receive Date: 20090902
  Receipt Date: 20090828
  Transmission Date: 20100115
  Serious: No
  Sender: FDA-Public Use
  Company Number: US-B.I. PHARMACEUTICALS,INC./RIDGEFIELD-2009-BP-10190BP

PATIENT
  Sex: Female

DRUGS (5)
  1. ZANTAC 150 [Suspect]
     Indication: DYSPEPSIA
     Dosage: 150 MG
     Route: 048
     Dates: start: 20090701, end: 20090824
  2. LEVOTHYROXINE [Concomitant]
     Indication: THYROID DISORDER
  3. ATENOLOL [Concomitant]
     Indication: HYPERTENSION
  4. ASPIRIN [Concomitant]
     Indication: PROPHYLAXIS
  5. VITAMIN [Concomitant]
     Indication: PROPHYLAXIS

REACTIONS (1)
  - PRURITUS [None]
